FAERS Safety Report 7492031-2 (Version None)
Quarter: 2011Q2

REPORT INFORMATION
  Report Type: 
  Country: None (occurrence: None)
  Receive Date: 20110519
  Receipt Date: 20110511
  Transmission Date: 20111010
  Serious: Yes (Life-Threatening, Hospitalization, Other)
  Sender: FDA-Public Use
  Company Number: JP-BAYER-2011-005115

PATIENT
  Age: 63 Year
  Sex: Male
  Weight: 67 kg

DRUGS (4)
  1. URALYT [Concomitant]
     Dosage: UNK
  2. INTRON A [Concomitant]
     Dosage: UNK
     Route: 058
     Dates: start: 20101125, end: 20101231
  3. NEXAVAR [Suspect]
     Indication: RENAL CELL CARCINOMA
     Dosage: 200 MG, BID
     Route: 048
     Dates: start: 20101201
  4. ALLOPURINOL [Concomitant]
     Dosage: UNK

REACTIONS (4)
  - LIVER DISORDER [None]
  - RENAL DISORDER [None]
  - SEPSIS [None]
  - HEPATIC FAILURE [None]
